FAERS Safety Report 20110309 (Version 1)
Quarter: 2021Q4

REPORT INFORMATION
  Report Type: Spontaneous
  Country: US (occurrence: US)
  Receive Date: 20211124
  Receipt Date: 20211124
  Transmission Date: 20220304
  Serious: No
  Sender: FDA-Public Use
  Company Number: US-NOVOPROD-772534

PATIENT
  Age: 75 Year
  Sex: Male

DRUGS (1)
  1. NOVOLOG [Suspect]
     Active Substance: INSULIN ASPART
     Indication: Product used for unknown indication
     Dosage: 90 IU, QD
     Route: 058
     Dates: start: 2010, end: 202010

REACTIONS (1)
  - Hypoacusis [Not Recovered/Not Resolved]
